FAERS Safety Report 8877733 (Version 3)
Quarter: 2013Q1

REPORT INFORMATION
  Report Type: Spontaneous
  Country: JP (occurrence: None)
  Receive Date: 20121026
  Receipt Date: 20121213
  Transmission Date: 20140127
  Serious: Yes (Death)
  Sender: FDA-Public Use
  Company Number: JP-CLINIGEN HEALTHCARE LIMITED-003004

PATIENT
  Age: 65 Year
  Sex: Female

DRUGS (4)
  1. FOSCARNET SODIUM [Suspect]
     Indication: CYTOMEGALOVIRUS INFECTION
  2. TACROLIMUS [Concomitant]
  3. GANCICLOVIR [Concomitant]
  4. MYCOPHENOLATE MOFETIL (MYCOPHENOLATE MOFETIL) [Concomitant]

REACTIONS (1)
  - Intestinal perforation [None]
